FAERS Safety Report 6600957-4 (Version None)
Quarter: 2010Q1

REPORT INFORMATION
  Report Type: 
  Country: None (occurrence: None)
  Receive Date: 20100225
  Receipt Date: 20100219
  Transmission Date: 20100710
  Serious: Yes (Hospitalization, Other)
  Sender: FDA-Public Use
  Company Number: FR-RB-017768-09

PATIENT
  Sex: Male

DRUGS (4)
  1. SUBUTEX [Suspect]
     Indication: DRUG USE FOR UNKNOWN INDICATION
     Dosage: DOSING INFORMATION UNKNOWN.
     Route: 064
     Dates: end: 20090419
  2. EFFEXOR [Concomitant]
     Indication: DRUG USE FOR UNKNOWN INDICATION
     Dosage: DOSING INFORMATION UNKNOWN.
     Route: 065
     Dates: end: 20080801
  3. LAROXYL [Concomitant]
     Dosage: DOSING INFORMATION UNKNOWN.
     Route: 065
     Dates: start: 20080901, end: 20090101
  4. SERESTA [Concomitant]
     Dosage: DOSING INFORMATION UNKNOWN.
     Route: 065
     Dates: start: 20090101

REACTIONS (8)
  - APGAR SCORE LOW [None]
  - ARRHYTHMIA [None]
  - CAESAREAN SECTION [None]
  - DRUG EXPOSURE DURING PREGNANCY [None]
  - DRUG WITHDRAWAL SYNDROME NEONATAL [None]
  - FOETAL GROWTH RETARDATION [None]
  - HYPOCALCAEMIA [None]
  - MATERNAL DRUGS AFFECTING FOETUS [None]
